FAERS Safety Report 18213612 (Version 1)
Quarter: 2020Q3

REPORT INFORMATION
  Report Type: Spontaneous
  Country: US (occurrence: US)
  Receive Date: 20200831
  Receipt Date: 20200831
  Transmission Date: 20201103
  Serious: Yes (Other)
  Sender: FDA-Public Use
  Company Number: None

PATIENT
  Sex: Female
  Weight: 56.7 kg

DRUGS (11)
  1. CRESTOR [Concomitant]
     Active Substance: ROSUVASTATIN CALCIUM
  2. BENTYL [Concomitant]
     Active Substance: DICYCLOMINE HYDROCHLORIDE
  3. ASPIRIN 81 MG [Concomitant]
     Active Substance: ASPIRIN
  4. VITAMIN D3 [Concomitant]
     Active Substance: CHOLECALCIFEROL
  5. STOOL SOFTENER (DOCUSATE) [Concomitant]
     Active Substance: DOCUSATE
  6. ORENCIA [Concomitant]
     Active Substance: ABATACEPT
  7. ACIPHEX [Concomitant]
     Active Substance: RABEPRAZOLE SODIUM
  8. METFORMIN [Concomitant]
     Active Substance: METFORMIN HYDROCHLORIDE
  9. PREDNISONE. [Concomitant]
     Active Substance: PREDNISONE
  10. RECLAST [Suspect]
     Active Substance: ZOLEDRONIC ACID
  11. FISH OIL [Concomitant]
     Active Substance: FISH OIL

REACTIONS (9)
  - Illness [None]
  - Loss of personal independence in daily activities [None]
  - Myalgia [None]
  - Headache [None]
  - Gait disturbance [None]
  - Arthralgia [None]
  - Middle insomnia [None]
  - Diarrhoea [None]
  - Bone pain [None]
